FAERS Safety Report 10636578 (Version 3)
Quarter: 2015Q3

REPORT INFORMATION
  Report Type: Report from Study
  Country: CN (occurrence: CN)
  Receive Date: 20141208
  Receipt Date: 20150929
  Transmission Date: 20151125
  Serious: Yes (Other)
  Sender: FDA-Public Use
  Company Number: CN-ROCHE-1502599

PATIENT
  Sex: Female

DRUGS (5)
  1. PEMETREXED [Suspect]
     Active Substance: PEMETREXED
     Indication: NON-SMALL CELL LUNG CANCER
     Route: 042
  2. VITAMIN B12 [Concomitant]
     Active Substance: CYANOCOBALAMIN
     Dosage: BEFORE THE FIRST DOSE OF PEMETREXED AND WAS REPEATED APPROXIMATELY EVERY 9 WEEKS
     Route: 030
  3. DEXAMETHASONE. [Concomitant]
     Active Substance: DEXAMETHASONE
     Dosage: THE DAY BEFORE, THE DAY OF, AND THE DAY AFTER PEMETREXED OF EACH CYCLE)
     Route: 048
  4. BEVACIZUMAB [Suspect]
     Active Substance: BEVACIZUMAB
     Indication: NON-SMALL CELL LUNG CANCER
     Route: 042
  5. FOLIC ACID. [Concomitant]
     Active Substance: FOLIC ACID
     Dosage: 350-1000 MCG ORALLY DAILY
     Route: 048

REACTIONS (6)
  - Neutropenia [Unknown]
  - Nausea [Unknown]
  - Haemorrhage [Unknown]
  - Fatigue [Unknown]
  - Thirst [Unknown]
  - Decreased appetite [Unknown]
